FAERS Safety Report 4457937-7 (Version None)
Quarter: 2004Q3

REPORT INFORMATION
  Report Type: 
  Country: None (occurrence: None)
  Receive Date: 20040922
  Receipt Date: 20040903
  Transmission Date: 20050211
  Serious: Yes (Hospitalization)
  Sender: FDA-Public Use
  Company Number: 2004AP04597

PATIENT
  Age: 65 Year
  Sex: Female

DRUGS (3)
  1. NOLVADEX [Suspect]
     Indication: BREAST CANCER
     Dosage: 20 MG DAILY PO
     Route: 048
     Dates: start: 20011229
  2. SYMMETREL [Suspect]
     Indication: PARKINSON'S DISEASE
     Dosage: 150 MG DAILY PO
     Route: 048
     Dates: start: 19860101
  3. CARBIDOPA AND LEVODOPA [Suspect]
     Indication: PARKINSON'S DISEASE
     Dosage: 100 MG DAILY PO
     Route: 048
     Dates: start: 19860101

REACTIONS (1)
  - ENTERITIS INFECTIOUS [None]
